FAERS Safety Report 25901569 (Version 1)
Quarter: 2025Q4

REPORT INFORMATION
  Report Type: Spontaneous
  Country: US (occurrence: None)
  Receive Date: 20251008
  Receipt Date: 20251008
  Transmission Date: 20260118
  Serious: Yes (Hospitalization)
  Sender: FDA-CTU
  Company Number: None

PATIENT
  Sex: Female

DRUGS (2)
  1. GAMMAGARD LIQUID [Suspect]
     Active Substance: HUMAN IMMUNOGLOBULIN G
     Indication: Hypogammaglobulinaemia
     Dosage: OTHER STRENGTH : 30GM/300M;?OTHER FREQUENCY : EVERY 3 WEEKS;?
     Route: 042
     Dates: start: 20250301
  2. GAMMAGARD LIQUID [Suspect]
     Active Substance: HUMAN IMMUNOGLOBULIN G
     Indication: Hypogammaglobulinaemia
     Dosage: OTHER STRENGTH : 5GM/50ML;?OTHER FREQUENCY : EVERY 3 WEEKS;?
     Route: 042
     Dates: start: 20250301

REACTIONS (1)
  - Vascular graft [None]
